FAERS Safety Report 14967089 (Version 1)
Quarter: 2018Q2

REPORT INFORMATION
  Report Type: Spontaneous
  Country: US (occurrence: US)
  Receive Date: 20180604
  Receipt Date: 20180604
  Transmission Date: 20180711
  Serious: Yes (Other)
  Sender: FDA-Public Use
  Company Number: US-CHEPLA-C20170783_B

PATIENT
  Age: 56 Year
  Sex: Female

DRUGS (6)
  1. ATO (ARSENIC TRIOXIDE) [Suspect]
     Active Substance: ARSENIC TRIOXIDE
     Indication: ACUTE PROMYELOCYTIC LEUKAEMIA
     Dosage: 0.25 MG/KG ON DAY 3, TWICE A WEEK
  2. ERYTHROPOIETIN [Concomitant]
     Active Substance: ERYTHROPOIETIN
  3. HYDROXYUREA. [Concomitant]
     Active Substance: HYDROXYUREA
  4. DARBEPOETIN ALFA [Concomitant]
     Active Substance: DARBEPOETIN ALFA
  5. ATRA [Suspect]
     Active Substance: TRETINOIN
     Indication: ACUTE PROMYELOCYTIC LEUKAEMIA
  6. ATO (ARSENIC TRIOXIDE) [Suspect]
     Active Substance: ARSENIC TRIOXIDE
     Indication: ACUTE PROMYELOCYTIC LEUKAEMIA
     Dosage: ATO RESTARTED ON DAY 21 WITH A 30% DOSE REDUCTION THREE TIMES A WEEK

REACTIONS (3)
  - Anaemia [Recovered/Resolved]
  - Angina pectoris [Unknown]
  - White blood cell count increased [Recovered/Resolved]
